FAERS Safety Report 9074028 (Version 1)
Quarter: 2013Q1

REPORT INFORMATION
  Report Type: Report from Study
  Country: US (occurrence: US)
  Receive Date: 20130129
  Receipt Date: 20130129
  Transmission Date: 20140127
  Serious: Yes (Other)
  Sender: FDA-Public Use
  Company Number: US-ABBOTT-12P-163-0911442-00

PATIENT
  Age: 51 None
  Sex: Female
  Weight: 88.53 kg

DRUGS (10)
  1. HUMIRA 40 MG/0.8 ML PEN [Suspect]
     Indication: RHEUMATOID ARTHRITIS
     Dates: start: 2003
  2. SAVELLA [Concomitant]
     Indication: FIBROMYALGIA
  3. ALEVE [Concomitant]
     Indication: MYALGIA
     Dosage: 1-2
  4. GENERIC PROZAC [Concomitant]
     Indication: DEPRESSION
  5. ANTIHISTAMINE [Concomitant]
     Indication: HYPERSENSITIVITY
  6. ANTIHISTAMINE [Concomitant]
     Indication: UPPER-AIRWAY COUGH SYNDROME
  7. LEVOXYL [Concomitant]
     Indication: HYPERTHYROIDISM
  8. TOPROL XL [Concomitant]
     Indication: HEART RATE IRREGULAR
  9. CLONAZEPAM [Concomitant]
     Indication: INSOMNIA
     Dates: start: 2003
  10. CLONAZEPAM [Concomitant]
     Indication: RESTLESS LEGS SYNDROME

REACTIONS (20)
  - Pilonidal cyst [Not Recovered/Not Resolved]
  - Pilonidal cyst [Unknown]
  - Cholecystectomy [Unknown]
  - Rash papular [Unknown]
  - Pruritus [Unknown]
  - Pain [Unknown]
  - Piloerection [Unknown]
  - Impaired healing [Unknown]
  - Rash [Unknown]
  - Wound [Unknown]
  - Eczema [Unknown]
  - Pruritus [Unknown]
  - Skin irritation [Unknown]
  - Tinea pedis [Unknown]
  - Pain [Unknown]
  - Pruritus [Unknown]
  - Tinea infection [Unknown]
  - Hot flush [Unknown]
  - Night sweats [Unknown]
  - Dandruff [Unknown]
